FAERS Safety Report 13950602 (Version 1)
Quarter: 2017Q3

REPORT INFORMATION
  Report Type: Spontaneous
  Country: US (occurrence: US)
  Receive Date: 20170908
  Receipt Date: 20170908
  Transmission Date: 20171128
  Serious: Yes (Other)
  Sender: FDA-Public Use
  Company Number: US-ROCHE-1131171

PATIENT
  Sex: Male

DRUGS (1)
  1. RITUXAN [Suspect]
     Active Substance: RITUXIMAB
     Indication: CHRONIC LYMPHOCYTIC LEUKAEMIA
     Route: 065
     Dates: start: 200507

REACTIONS (5)
  - White blood cell count decreased [Unknown]
  - Night sweats [Unknown]
  - Fatigue [Recovering/Resolving]
  - Platelet count decreased [Unknown]
  - Impaired healing [Unknown]
